FAERS Safety Report 21155218 (Version 1)
Quarter: 2022Q3

REPORT INFORMATION
  Report Type: Spontaneous
  Country: US (occurrence: US)
  Receive Date: 20220801
  Receipt Date: 20220801
  Transmission Date: 20221027
  Serious: No
  Sender: FDA-Public Use
  Company Number: US-BRISTOL-MYERS SQUIBB COMPANY-2022-083040

PATIENT
  Age: 67 Year
  Sex: Male
  Weight: 58.967 kg

DRUGS (1)
  1. REVLIMID [Suspect]
     Active Substance: LENALIDOMIDE
     Indication: Plasma cell myeloma
     Dosage: DAILY FOR 14 DAYS
     Route: 048
     Dates: start: 20220701

REACTIONS (3)
  - Rash [Unknown]
  - Pruritus [Unknown]
  - Constipation [Unknown]

NARRATIVE: CASE EVENT DATE: 20220701
